FAERS Safety Report 7989532-7 (Version None)
Quarter: 2011Q4

REPORT INFORMATION
  Report Type: 
  Country: None (occurrence: None)
  Receive Date: 20111219
  Receipt Date: 20110928
  Transmission Date: 20120403
  Serious: No
  Sender: FDA-Public Use
  Company Number: US-ASTRAZENECA-2011SE58511

PATIENT
  Age: 73 Year
  Sex: Male
  Weight: 98 kg

DRUGS (10)
  1. VITAMIN D [Concomitant]
  2. ASPIRIN [Concomitant]
  3. LEVOXYL [Concomitant]
  4. BENICAR [Concomitant]
  5. PRILOSEC [Suspect]
     Route: 048
  6. METOPROLOL TARTRATE [Concomitant]
     Indication: BLOOD PRESSURE ABNORMAL
  7. MULTI-VITAMINS [Concomitant]
  8. LOVAZA [Concomitant]
  9. CRESTOR [Suspect]
     Indication: BLOOD CHOLESTEROL INCREASED
     Route: 048
  10. FINASTERIDE [Concomitant]

REACTIONS (3)
  - ABDOMINAL PAIN [None]
  - RENAL DISORDER [None]
  - BACK PAIN [None]
